FAERS Safety Report 4745006-8 (Version None)
Quarter: 2005Q3

REPORT INFORMATION
  Report Type: 
  Country: None (occurrence: None)
  Receive Date: 20050812
  Receipt Date: 20050812
  Transmission Date: 20060218
  Serious: Yes (Other)
  Sender: FDA-Public Use
  Company Number: None

PATIENT
  Sex: Female
  Weight: 70.3075 kg

DRUGS (2)
  1. FLOXIN [Suspect]
     Indication: VAGINITIS BACTERIAL
     Dosage: ORAL 1/DAY
     Route: 048
     Dates: start: 19950101
  2. ORTHO BIRTH CONTROL [Concomitant]

REACTIONS (6)
  - ANXIETY [None]
  - CONFUSIONAL STATE [None]
  - DEPRESSION [None]
  - DISSOCIATIVE AMNESIA [None]
  - NIGHTMARE [None]
  - SLEEP TERROR [None]
